FAERS Safety Report 5548407-3 (Version None)
Quarter: 2007Q4

REPORT INFORMATION
  Report Type: 
  Country: None (occurrence: None)
  Receive Date: 20071211
  Receipt Date: 20070406
  Transmission Date: 20080405
  Serious: No
  Sender: FDA-Public Use
  Company Number: US-AMGEN-KDL215113

PATIENT
  Sex: Female

DRUGS (3)
  1. ENBREL [Suspect]
     Indication: PSORIASIS
     Route: 058
     Dates: start: 20070101
  2. SYNALAR [Concomitant]
  3. TRIAMCINOLONE [Concomitant]

REACTIONS (2)
  - EAR DISORDER [None]
  - INJECTION SITE REACTION [None]
